FAERS Safety Report 7392919-7 (Version None)
Quarter: 2011Q2

REPORT INFORMATION
  Report Type: 
  Country: None (occurrence: None)
  Receive Date: 20110404
  Receipt Date: 20110329
  Transmission Date: 20111010
  Serious: No
  Sender: FDA-Public Use
  Company Number: JP-PFIZER INC-2011067633

PATIENT
  Age: 76 Year
  Sex: Male

DRUGS (3)
  1. LASIX [Concomitant]
     Dosage: UNK
     Route: 048
     Dates: start: 20110318
  2. LYRICA [Suspect]
     Indication: NEURALGIA
     Dosage: 75 MG, DAILY
     Route: 048
     Dates: start: 20110318
  3. VOLTAREN [Concomitant]
     Dosage: UNK
     Route: 048
     Dates: start: 20110318

REACTIONS (1)
  - TREMOR [None]
